FAERS Safety Report 9906953 (Version 1)
Quarter: 2014Q1

REPORT INFORMATION
  Report Type: Spontaneous
  Country: US (occurrence: US)
  Receive Date: 20140218
  Receipt Date: 20140218
  Transmission Date: 20141002
  Serious: No
  Sender: FDA-Public Use
  Company Number: US-GILEAD-2014-0094389

PATIENT
  Sex: Male

DRUGS (3)
  1. SOVALDI [Suspect]
     Indication: CHRONIC HEPATITIS C
     Dosage: 400 MG, UNK
     Route: 065
     Dates: start: 20140207
  2. PEGINTERFERON ALFA [Suspect]
     Indication: CHRONIC HEPATITIS C
     Dosage: UNK
     Route: 065
  3. RIBAVIRIN [Concomitant]

REACTIONS (6)
  - Malaise [Recovering/Resolving]
  - Abdominal discomfort [Recovering/Resolving]
  - Influenza like illness [Recovering/Resolving]
  - Pyrexia [Recovering/Resolving]
  - Chills [Recovering/Resolving]
  - Headache [Recovering/Resolving]
